FAERS Safety Report 6221393-9 (Version None)
Quarter: 2009Q2

REPORT INFORMATION
  Report Type: 
  Country: None (occurrence: None)
  Receive Date: 20090608
  Receipt Date: 20090528
  Transmission Date: 20091009
  Serious: Yes (Hospitalization)
  Sender: FDA-Public Use
  Company Number: 230175K09CAN

PATIENT
  Age: 50 Year
  Sex: Male

DRUGS (4)
  1. REBIF [Suspect]
     Indication: RELAPSING-REMITTING MULTIPLE SCLEROSIS
     Dosage: 44 MCG, 3 IN 1 WEEKS
     Dates: start: 20071003
  2. ESCITALOPRAM [Concomitant]
  3. CALCIUM AND VITAMIN D (CALCIUM WITH VITAMIN D) [Concomitant]
  4. IMMOVANE (ZOPICLONE) [Concomitant]

REACTIONS (7)
  - AMNESIA [None]
  - CONTUSION [None]
  - INFLUENZA LIKE ILLNESS [None]
  - MUSCLE TWITCHING [None]
  - MUSCULOSKELETAL STIFFNESS [None]
  - OPTIC NEURITIS [None]
  - PNEUMONIA [None]
